FAERS Safety Report 13913003 (Version 1)
Quarter: 2017Q3

REPORT INFORMATION
  Report Type: Spontaneous
  Country: US (occurrence: US)
  Receive Date: 20170828
  Receipt Date: 20170828
  Transmission Date: 20171127
  Serious: Yes (Hospitalization, Other)
  Sender: FDA-Public Use
  Company Number: US-BAUSCH-BL-2017-025377

PATIENT
  Age: 21 Year
  Sex: Male

DRUGS (2)
  1. INSULIN [Concomitant]
     Active Substance: INSULIN NOS
     Indication: DIABETIC KETOACIDOSIS
  2. SODIUM CHLORIDE. [Suspect]
     Active Substance: SODIUM CHLORIDE
     Indication: DIABETIC KETOACIDOSIS
     Dosage: NORMAL SALINE
     Route: 065

REACTIONS (2)
  - Acidosis hyperchloraemic [Recovered/Resolved]
  - Hyperchloraemia [Recovered/Resolved]
